FAERS Safety Report 12060895 (Version 1)
Quarter: 2016Q1

REPORT INFORMATION
  Report Type: Other
  Country: US (occurrence: US)
  Receive Date: 20160210
  Receipt Date: 20160210
  Transmission Date: 20160526
  Serious: No
  Sender: FDA-Public Use
  Company Number: US-MYLANLABS-2015M1037277

PATIENT

DRUGS (9)
  1. METOPROLOL SUCCINATE EXTENDED-RELEASE TABLETS, USP [Suspect]
     Active Substance: METOPROLOL SUCCINATE
     Indication: HEART RATE INCREASED
     Dosage: 50 MG, BID
     Dates: start: 2015
  2. SYMBICORT [Concomitant]
     Active Substance: BUDESONIDE\FORMOTEROL FUMARATE DIHYDRATE
     Dosage: UNK
     Route: 065
  3. ADVIL (MEFENAMIC ACID) [Concomitant]
     Active Substance: MEFENAMIC ACID
     Dosage: UNK, PRN
     Route: 065
  4. METOPROLOL SUCCINATE EXTENDED-RELEASE TABLETS, USP [Suspect]
     Active Substance: METOPROLOL SUCCINATE
     Indication: BLOOD PRESSURE INCREASED
     Dosage: 50 MG, QD
     Dates: start: 20150728, end: 2015
  5. NAPROXEN SODIUM. [Concomitant]
     Active Substance: NAPROXEN SODIUM
     Dosage: UNK
     Route: 065
  6. LASIX [Concomitant]
     Active Substance: FUROSEMIDE
     Dosage: UNK
     Route: 065
  7. LOVASTATIN. [Concomitant]
     Active Substance: LOVASTATIN
     Dosage: UNK
     Route: 065
  8. LOSARTAN. [Concomitant]
     Active Substance: LOSARTAN
     Dosage: UNK
     Route: 065
  9. POTASSIUM                          /00031402/ [Concomitant]
     Active Substance: POTASSIUM
     Dosage: UNK
     Route: 065

REACTIONS (1)
  - Drug effect incomplete [Recovered/Resolved]

NARRATIVE: CASE EVENT DATE: 2015
